FAERS Safety Report 7243555-4 (Version None)
Quarter: 2011Q1

REPORT INFORMATION
  Report Type: 
  Country: None (occurrence: None)
  Receive Date: 20110121
  Receipt Date: 20101214
  Transmission Date: 20110831
  Serious: Yes (Hospitalization, Other)
  Sender: FDA-Public Use
  Company Number: TPA2010A06251

PATIENT
  Age: 42 Year
  Sex: Female

DRUGS (4)
  1. SINGULAIR [Concomitant]
  2. DEXILANT [Suspect]
     Indication: GASTROOESOPHAGEAL REFLUX DISEASE
     Dosage: 60 MG
     Dates: start: 20101001, end: 20101031
  3. PRAVASTATIN [Concomitant]
  4. DILOXITUN (ALL OTHER THERAPEUTIC PRODUCTS) [Concomitant]

REACTIONS (2)
  - URTICARIA [None]
  - BRONCHOSPASM [None]
